FAERS Safety Report 8483894 (Version 5)
Quarter: 2013Q2

REPORT INFORMATION
  Report Type: Spontaneous
  Country: FR (occurrence: FR)
  Receive Date: 20120330
  Receipt Date: 20130621
  Transmission Date: 20140414
  Serious: Yes (Hospitalization)
  Sender: FDA-Public Use
  Company Number: FR-BIOGENIDEC-2012BI010911

PATIENT
  Age: 46 Year
  Sex: Male

DRUGS (8)
  1. TYSABRI [Suspect]
     Indication: MULTIPLE SCLEROSIS
     Route: 042
     Dates: start: 200902, end: 20111020
  2. RIVOTRIL [Concomitant]
     Route: 048
  3. OMIX SUSTAINED RELEASE [Concomitant]
     Route: 048
  4. CERIS [Concomitant]
     Route: 048
  5. GABAPENTINE [Concomitant]
     Route: 048
  6. EUPANTOL [Concomitant]
     Route: 048
  7. EDUCTYL [Concomitant]
     Route: 054
  8. GLATIRAMER ACETATE [Concomitant]
     Indication: MULTIPLE SCLEROSIS
     Dates: start: 20120808

REACTIONS (3)
  - Progressive multifocal leukoencephalopathy [Not Recovered/Not Resolved]
  - Immune reconstitution inflammatory syndrome [Not Recovered/Not Resolved]
  - Secondary progressive multiple sclerosis [Not Recovered/Not Resolved]
